FAERS Safety Report 23430322 (Version 1)
Quarter: 2024Q1

REPORT INFORMATION
  Report Type: Spontaneous
  Country: US (occurrence: US)
  Receive Date: 20240123
  Receipt Date: 20240123
  Transmission Date: 20240410
  Serious: No
  Sender: FDA-Public Use
  Company Number: US-OPELLA-2024OHG001827

PATIENT
  Sex: Female

DRUGS (1)
  1. ICY HOT VANISHING SCENT [Suspect]
     Active Substance: MENTHOL
     Indication: Carpal tunnel syndrome
     Route: 065

REACTIONS (4)
  - Drug ineffective [Unknown]
  - Product physical consistency issue [Unknown]
  - Product use in unapproved indication [Unknown]
  - No adverse event [Unknown]
